FAERS Safety Report 5751280-1 (Version None)
Quarter: 2008Q2

REPORT INFORMATION
  Report Type: 
  Country: None (occurrence: None)
  Receive Date: 20080528
  Receipt Date: 20080520
  Transmission Date: 20081010
  Serious: Yes (Other)
  Sender: FDA-Public Use
  Company Number: FR-PFIZER INC-2008013033

PATIENT
  Sex: Female

DRUGS (2)
  1. XANAX [Suspect]
     Route: 048
  2. DI-ANTALVIC [Concomitant]
     Route: 048

REACTIONS (2)
  - BLOOD PROLACTIN INCREASED [None]
  - BREAST ABSCESS [None]
